FAERS Safety Report 4918149-3 (Version None)
Quarter: 2006Q1

REPORT INFORMATION
  Report Type: 
  Country: None (occurrence: None)
  Receive Date: 20060221
  Receipt Date: 20051031
  Transmission Date: 20060701
  Serious: Yes (Hospitalization)
  Sender: FDA-Public Use
  Company Number: US-MERCK-0511USA00336

PATIENT
  Age: 78 Year
  Sex: Female
  Weight: 104 kg

DRUGS (4)
  1. VIOXX [Suspect]
     Indication: RHEUMATOID ARTHRITIS
     Route: 048
     Dates: start: 20020101, end: 20031001
  2. VIOXX [Suspect]
     Route: 048
     Dates: start: 20020101, end: 20031001
  3. VIOXX [Suspect]
     Indication: ARTHRITIS
     Route: 048
     Dates: start: 20020101, end: 20031001
  4. VIOXX [Suspect]
     Route: 048
     Dates: start: 20020101, end: 20031001

REACTIONS (5)
  - BREAST CANCER [None]
  - CHOLELITHIASIS [None]
  - DEEP VEIN THROMBOSIS [None]
  - OESOPHAGEAL DISORDER [None]
  - OVERDOSE [None]
